FAERS Safety Report 5113676-0 (Version None)
Quarter: 2006Q3

REPORT INFORMATION
  Report Type: 
  Country: None (occurrence: None)
  Receive Date: 20060920
  Receipt Date: 20060912
  Transmission Date: 20061208
  Serious: Yes (Hospitalization, Other)
  Sender: FDA-Public Use
  Company Number: 2006107661

PATIENT
  Age: 71 Year
  Sex: Male
  Weight: 61.2356 kg

DRUGS (10)
  1. LIPITOR [Suspect]
     Indication: BLOOD CHOLESTEROL INCREASED
     Dosage: 10 MG (10 MG,HS),ORAL
     Route: 048
     Dates: start: 20050101
  2. ACETAMINOPHEN [Concomitant]
  3. CELEBREX [Concomitant]
  4. ZOLOFT [Concomitant]
  5. VASOTEC [Concomitant]
  6. NORVASC [Concomitant]
  7. ASPIRIN [Concomitant]
  8. NOVO-TEMAZEPAM (TEMAZEPAM) [Concomitant]
  9. DOMPERIDONE (DOMPERIDONE) [Concomitant]
  10. LOSEC (OMEPRAZOLE) [Concomitant]

REACTIONS (11)
  - ANOREXIA [None]
  - DEPRESSION [None]
  - DRUG INEFFECTIVE [None]
  - FATIGUE [None]
  - HYPERHIDROSIS [None]
  - HYPERTENSION [None]
  - NAUSEA [None]
  - PAIN IN EXTREMITY [None]
  - PARAESTHESIA [None]
  - SOMNOLENCE [None]
  - TRANSIENT ISCHAEMIC ATTACK [None]
